FAERS Safety Report 12966948 (Version 2)
Quarter: 2017Q1

REPORT INFORMATION
  Report Type: Report from Study
  Country: DE (occurrence: DE)
  Receive Date: 20161123
  Receipt Date: 20170328
  Transmission Date: 20170428
  Serious: Yes (Life-Threatening, Hospitalization)
  Sender: FDA-Public Use
  Company Number: DE-ROCHE-1857505

PATIENT
  Age: 82 Year
  Sex: Female

DRUGS (6)
  1. RITUXIMAB [Suspect]
     Active Substance: RITUXIMAB
     Indication: RHEUMATOID ARTHRITIS
     Route: 042
  2. FOLIC ACID. [Concomitant]
     Active Substance: FOLIC ACID
  3. PANTOPRAZOL [Concomitant]
     Active Substance: PANTOPRAZOLE SODIUM
  4. PREDNISOLON [Concomitant]
     Active Substance: PREDNISOLONE
  5. METHOTREXATE. [Suspect]
     Active Substance: METHOTREXATE
     Indication: RHEUMATOID ARTHRITIS
     Route: 065
  6. IBANDRONATE [Concomitant]
     Active Substance: IBANDRONATE SODIUM

REACTIONS (4)
  - Venous thrombosis limb [Not Recovered/Not Resolved]
  - Interstitial lung disease [Recovered/Resolved]
  - Gastroenteritis [Unknown]
  - Pulmonary embolism [Not Recovered/Not Resolved]

NARRATIVE: CASE EVENT DATE: 201609
